FAERS Safety Report 5478961-1 (Version None)
Quarter: 2007Q4

REPORT INFORMATION
  Report Type: 
  Country: None (occurrence: None)
  Receive Date: 20071006
  Receipt Date: 20070927
  Transmission Date: 20080405
  Serious: Yes (Life-Threatening, Other)
  Sender: FDA-Public Use
  Company Number: JP-PFIZER INC-2007069696

PATIENT
  Sex: Male

DRUGS (2)
  1. ZOLOFT [Suspect]
     Indication: PANIC DISORDER
     Route: 048
     Dates: start: 20070109, end: 20070819
  2. DOGMATYL [Suspect]
     Indication: PANIC DISORDER
     Route: 048

REACTIONS (3)
  - PANIC DISORDER [None]
  - SOMNOLENCE [None]
  - SUICIDAL IDEATION [None]
